FAERS Safety Report 7454472-9 (Version None)
Quarter: 2011Q1

REPORT INFORMATION
  Report Type: 
  Country: None (occurrence: None)
  Receive Date: 20110302
  Receipt Date: 20110111
  Transmission Date: 20110831
  Serious: No
  Sender: FDA-Public Use
  Company Number: 025269

PATIENT
  Sex: Male

DRUGS (1)
  1. CIMZIA [Suspect]
     Dosage: 400 MG 1X/2 WEEKS, 0, 2 AND 4 WEEKS SUBCUTANEOUS
     Route: 058

REACTIONS (3)
  - HAEMORRHOIDS [None]
  - DISCOMFORT [None]
  - ANORECTAL DISCOMFORT [None]
